FAERS Safety Report 7313618-3 (Version None)
Quarter: 2011Q1

REPORT INFORMATION
  Report Type: 
  Country: None (occurrence: None)
  Receive Date: 20110218
  Receipt Date: 20110218
  Transmission Date: 20110831
  Serious: Yes (Life-Threatening, Hospitalization)
  Sender: FDA-Public Use
  Company Number: None

PATIENT
  Age: 83 Year
  Sex: Female
  Weight: 46.2669 kg

DRUGS (2)
  1. MACRODANTIN [Suspect]
     Indication: URINARY TRACT INFECTION
     Dosage: 1 PILL TWICE DAILY? PO
     Route: 048
     Dates: start: 20091012, end: 20091017
  2. MACROBID [Suspect]
     Indication: URINARY TRACT INFECTION
     Dosage: 1 PILL TWICE DAILY PO
     Route: 048
     Dates: start: 20101203, end: 20101204

REACTIONS (7)
  - WHITE BLOOD CELL COUNT INCREASED [None]
  - MEDICATION ERROR [None]
  - BLOOD GLUCOSE ABNORMAL [None]
  - URINARY TRACT INFECTION [None]
  - DRUG HYPERSENSITIVITY [None]
  - DEPRESSION [None]
  - DOCUMENTED HYPERSENSITIVITY TO ADMINISTERED DRUG [None]
